FAERS Safety Report 19331562 (Version 1)
Quarter: 2021Q2

REPORT INFORMATION
  Report Type: Spontaneous
  Country: KR (occurrence: KR)
  Receive Date: 20210528
  Receipt Date: 20210528
  Transmission Date: 20210717
  Serious: Yes (Other)
  Sender: FDA-Public Use
  Company Number: KR-GILEAD-2021-0532994

PATIENT
  Age: 43 Year
  Sex: Male

DRUGS (1)
  1. HEPSERA [Suspect]
     Active Substance: ADEFOVIR DIPIVOXIL
     Indication: PRODUCT USED FOR UNKNOWN INDICATION
     Dosage: 10 MG, UNK
     Route: 048

REACTIONS (4)
  - Pain in extremity [Recovered/Resolved]
  - Hypophosphataemia [Recovered/Resolved]
  - Pathological fracture [Recovered/Resolved]
  - Arthralgia [Recovered/Resolved]
